FAERS Safety Report 16033509 (Version 2)
Quarter: 2019Q1

REPORT INFORMATION
  Report Type: Spontaneous
  Country: US (occurrence: US)
  Receive Date: 20190305
  Receipt Date: 20190329
  Transmission Date: 20190418
  Serious: No
  Sender: FDA-Public Use
  Company Number: US-B.I. PHARMACEUTICALS,INC./RIDGEFIELD-2019-BI-007999

PATIENT
  Age: 67 Year
  Sex: Male

DRUGS (1)
  1. JARDIANCE [Suspect]
     Active Substance: EMPAGLIFLOZIN
     Indication: TYPE 2 DIABETES MELLITUS
     Route: 048
     Dates: start: 201901, end: 201901

REACTIONS (4)
  - Swelling [Recovered/Resolved]
  - Rash macular [Not Recovered/Not Resolved]
  - Dyspnoea [Not Recovered/Not Resolved]
  - Genital blister [Recovered/Resolved]

NARRATIVE: CASE EVENT DATE: 201901
